FAERS Safety Report 9507505 (Version 1)
Quarter: 2013Q1

REPORT INFORMATION
  Report Type: Spontaneous
  Country: US (occurrence: None)
  Receive Date: 20130305
  Receipt Date: 20130305
  Transmission Date: 20140127
  Serious: Yes (Other)
  Sender: FDA-Public Use
  Company Number: 163-21880-12032444

PATIENT
  Age: 65 Year
  Sex: Male

DRUGS (8)
  1. REVLIMID [Suspect]
     Indication: PLASMA CELL MYELOMA
     Dosage: 5 MG, 21 IN 28 D, PO
     Route: 048
     Dates: start: 201007
  2. NIACIN CR (NICOTINIC ACID) [Concomitant]
  3. ACYCLOVIR (ACICLOVIR) (ACICLOVIR) [Concomitant]
  4. CALCIUM 500 + VITAMIN D (CALCIUM D3 ^STADA^) [Concomitant]
  5. HUMALOG (INSULIN LISPRO) [Concomitant]
  6. LANTUS (INSULIN GLARGINGE) [Concomitant]
  7. PROTONIX [Concomitant]
  8. LIPITOR (ATORVASTATIN) [Concomitant]

REACTIONS (3)
  - Neutropenia [None]
  - White blood cell count decreased [None]
  - Platelet count decreased [None]
